FAERS Safety Report 16850208 (Version 4)
Quarter: 2020Q4

REPORT INFORMATION
  Report Type: Spontaneous
  Country: US (occurrence: US)
  Receive Date: 20190925
  Receipt Date: 20201127
  Transmission Date: 20210113
  Serious: Yes (Other)
  Sender: FDA-Public Use
  Company Number: US-GILEAD-2019-0429511

PATIENT
  Age: 51 Year
  Sex: Male
  Weight: 82.54 kg

DRUGS (63)
  1. BIKTARVY [Concomitant]
     Active Substance: BICTEGRAVIR SODIUM\EMTRICITABINE\TENOFOVIR ALAFENAMIDE FUMARATE
  2. CIMDUO [Concomitant]
     Active Substance: LAMIVUDINE\TENOFOVIR DISOPROXIL FUMARATE
  3. BUSPIRONE [Concomitant]
     Active Substance: BUSPIRONE HYDROCHLORIDE
  4. ATORVASTATIN CALCIUM. [Concomitant]
     Active Substance: ATORVASTATIN CALCIUM
  5. AMMONIUM LACTATE. [Concomitant]
     Active Substance: AMMONIUM LACTATE
  6. TRIZIVIR [Concomitant]
     Active Substance: ABACAVIR SULFATE\LAMIVUDINE\ZIDOVUDINE
  7. PAROXETINE. [Concomitant]
     Active Substance: PAROXETINE
  8. ATRIPLA [Suspect]
     Active Substance: EFAVIRENZ\EMTRICITABINE\TENOFOVIR DISOPROXIL FUMARATE
     Indication: HIV INFECTION
     Dosage: UNK
     Route: 048
     Dates: start: 2001, end: 2018
  9. STRIBILD [Suspect]
     Active Substance: COBICISTAT\ELVITEGRAVIR\EMTRICITABINE\TENOFOVIR DISOPROXIL FUMARATE
     Indication: HIV INFECTION
     Dosage: UNK
     Route: 048
     Dates: start: 2001, end: 2018
  10. HALOPERIDOL. [Concomitant]
     Active Substance: HALOPERIDOL
  11. DOXAZOSIN [Concomitant]
     Active Substance: DOXAZOSIN MESYLATE
  12. LORAZEPAM. [Concomitant]
     Active Substance: LORAZEPAM
  13. TRAZODONE [Concomitant]
     Active Substance: TRAZODONE HYDROCHLORIDE
  14. GAVILYTE - C [Concomitant]
     Active Substance: POLYETHYLENE GLYCOL 3350\POTASSIUM CHLORIDE\SODIUM BICARBONATE\SODIUM CHLORIDE\SODIUM SULFATE
  15. EPLERENONE. [Concomitant]
     Active Substance: EPLERENONE
  16. HYDROXYZINE [Concomitant]
     Active Substance: HYDROXYZINE HYDROCHLORIDE
  17. JULUCA [Concomitant]
     Active Substance: DOLUTEGRAVIR SODIUM\RILPIVIRINE HYDROCHLORIDE
  18. HYDRALAZINE [Concomitant]
     Active Substance: HYDRALAZINE HYDROCHLORIDE
  19. COMBIVIR [Concomitant]
     Active Substance: LAMIVUDINE\ZIDOVUDINE
  20. TRUVADA [Suspect]
     Active Substance: EMTRICITABINE\TENOFOVIR DISOPROXIL FUMARATE
     Dosage: UNK
     Route: 048
     Dates: start: 2008, end: 20121113
  21. ATRIPLA [Suspect]
     Active Substance: EFAVIRENZ\EMTRICITABINE\TENOFOVIR DISOPROXIL FUMARATE
     Dosage: UNK
     Route: 048
     Dates: start: 2008, end: 2008
  22. STRIBILD [Suspect]
     Active Substance: COBICISTAT\ELVITEGRAVIR\EMTRICITABINE\TENOFOVIR DISOPROXIL FUMARATE
     Dosage: UNK
     Route: 048
     Dates: start: 2012, end: 2015
  23. AMLODIPINE [Concomitant]
     Active Substance: AMLODIPINE BESYLATE
  24. RISPERIDONE. [Concomitant]
     Active Substance: RISPERIDONE
  25. DIVALPROEX [Concomitant]
     Active Substance: DIVALPROEX SODIUM
  26. BISACODYL. [Concomitant]
     Active Substance: BISACODYL
  27. SERTRALINE [Concomitant]
     Active Substance: SERTRALINE HYDROCHLORIDE
  28. TAMSULOSIN [Concomitant]
     Active Substance: TAMSULOSIN
  29. TORSEMIDE. [Concomitant]
     Active Substance: TORSEMIDE
  30. SODIUM BICARBONATE. [Concomitant]
     Active Substance: SODIUM BICARBONATE
  31. VITAMIN D3 [Concomitant]
     Active Substance: CHOLECALCIFEROL
  32. FERROUS SULFATE. [Concomitant]
     Active Substance: FERROUS SULFATE
  33. SEROQUEL [Concomitant]
     Active Substance: QUETIAPINE FUMARATE
  34. ATORVASTATIN [Concomitant]
     Active Substance: ATORVASTATIN
  35. ASPIRIN (E.C.) [Concomitant]
     Active Substance: ASPIRIN
  36. CARVEDILOL. [Concomitant]
     Active Substance: CARVEDILOL
  37. ISENTRESS [Concomitant]
     Active Substance: RALTEGRAVIR POTASSIUM
  38. KALETRA [Concomitant]
     Active Substance: LOPINAVIR\RITONAVIR
  39. NORVIR [Concomitant]
     Active Substance: RITONAVIR
  40. ZERIT [Concomitant]
     Active Substance: STAVUDINE
  41. ZOLOFT [Concomitant]
     Active Substance: SERTRALINE HYDROCHLORIDE
  42. DIVALPROEX SODIUM. [Concomitant]
     Active Substance: DIVALPROEX SODIUM
  43. FLUOXETINE [Concomitant]
     Active Substance: FLUOXETINE HYDROCHLORIDE
  44. IRBESARTAN. [Concomitant]
     Active Substance: IRBESARTAN
  45. DIAZEPAM. [Concomitant]
     Active Substance: DIAZEPAM
  46. QUETIAPINE. [Concomitant]
     Active Substance: QUETIAPINE
  47. NIFEDIPINE. [Concomitant]
     Active Substance: NIFEDIPINE
  48. ZIPRASIDONE. [Concomitant]
     Active Substance: ZIPRASIDONE
  49. GAVILYTE G [Concomitant]
     Active Substance: POLYETHYLENE GLYCOL 3350\POTASSIUM CHLORIDE\SODIUM BICARBONATE\SODIUM CHLORIDE\SODIUM SULFATE
  50. LITHIUM CARBONATE. [Concomitant]
     Active Substance: LITHIUM CARBONATE
  51. PERPHENAZINE. [Concomitant]
     Active Substance: PERPHENAZINE
  52. CLONIDINE. [Concomitant]
     Active Substance: CLONIDINE
  53. ERGOCALCIFEROL. [Concomitant]
     Active Substance: ERGOCALCIFEROL
  54. FEROCON [Concomitant]
     Active Substance: FERROUS FUMARATE\FOLIC ACID\VITAMIN B COMPLEX
  55. BENZTROPINE [BENZATROPINE] [Concomitant]
     Active Substance: BENZTROPINE
  56. VIREAD [Suspect]
     Active Substance: TENOFOVIR DISOPROXIL FUMARATE
     Indication: HIV INFECTION
     Dosage: UNK
     Route: 048
     Dates: start: 2001, end: 2007
  57. TRUVADA [Suspect]
     Active Substance: EMTRICITABINE\TENOFOVIR DISOPROXIL FUMARATE
     Indication: HIV INFECTION
     Dosage: UNK
     Route: 048
     Dates: start: 2001, end: 2018
  58. OLANZAPINE. [Concomitant]
     Active Substance: OLANZAPINE
  59. BENZTROPINE [BENZATROPINE] [Concomitant]
     Active Substance: BENZTROPINE
  60. METOPROLOL. [Concomitant]
     Active Substance: METOPROLOL
  61. ROSUVASTATIN. [Concomitant]
     Active Substance: ROSUVASTATIN
  62. GENVOYA [Concomitant]
     Active Substance: COBICISTAT\ELVITEGRAVIR\EMTRICITABINE\TENOFOVIR ALAFENAMIDE FUMARATE
  63. LOSARTAN POTASSIUM. [Concomitant]
     Active Substance: LOSARTAN POTASSIUM

REACTIONS (9)
  - Fatigue [Not Recovered/Not Resolved]
  - Anxiety [Not Recovered/Not Resolved]
  - Decreased activity [Unknown]
  - Emotional distress [Not Recovered/Not Resolved]
  - End stage renal disease [Not Recovered/Not Resolved]
  - Quality of life decreased [Unknown]
  - Depression [Not Recovered/Not Resolved]
  - Anhedonia [Not Recovered/Not Resolved]
  - Pain [Not Recovered/Not Resolved]

NARRATIVE: CASE EVENT DATE: 20190604
